FAERS Safety Report 13831892 (Version 1)
Quarter: 2017Q3

REPORT INFORMATION
  Report Type: Spontaneous
  Country: US (occurrence: US)
  Receive Date: 20170803
  Receipt Date: 20170803
  Transmission Date: 20171127
  Serious: No
  Sender: FDA-Public Use
  Company Number: US-ROCHE-677908

PATIENT
  Age: 74 Year
  Sex: Female
  Weight: 47.3 kg

DRUGS (3)
  1. SPIRONOLACTONE. [Concomitant]
     Active Substance: SPIRONOLACTONE
     Route: 065
  2. BONIVA [Suspect]
     Active Substance: IBANDRONATE SODIUM
     Indication: OSTEOPOROSIS
     Route: 048
  3. REPLENEX [Concomitant]
     Route: 065

REACTIONS (7)
  - Inflammation [Unknown]
  - Nausea [Unknown]
  - Viral infection [Unknown]
  - Malaise [Not Recovered/Not Resolved]
  - Drug effect incomplete [Unknown]
  - Ill-defined disorder [Unknown]
  - Pain [Unknown]

NARRATIVE: CASE EVENT DATE: 20091231
